FAERS Safety Report 14252128 (Version 1)
Quarter: 2017Q4

REPORT INFORMATION
  Report Type: Spontaneous
  Country: HU (occurrence: HU)
  Receive Date: 20171205
  Receipt Date: 20171205
  Transmission Date: 20180321
  Serious: Yes (Other)
  Sender: FDA-Public Use
  Company Number: HU-ELI_LILLY_AND_COMPANY-HU201711010468

PATIENT
  Age: 79 Year
  Sex: Female

DRUGS (3)
  1. FORSTEO [Suspect]
     Active Substance: TERIPARATIDE
     Dosage: UNK
     Dates: start: 201601, end: 201705
  2. FORSTEO [Suspect]
     Active Substance: TERIPARATIDE
     Indication: PRODUCT USED FOR UNKNOWN INDICATION
     Dosage: UNK, UNKNOWN
     Route: 065
     Dates: start: 201510, end: 201511
  3. FORSTEO [Suspect]
     Active Substance: TERIPARATIDE
     Dosage: UNK
     Dates: start: 201511, end: 201601

REACTIONS (5)
  - Palpitations [Recovered/Resolved]
  - Osteonecrosis [Unknown]
  - Somnolence [Recovered/Resolved]
  - Fall [Unknown]
  - Jaw fracture [Unknown]

NARRATIVE: CASE EVENT DATE: 201602
